FAERS Safety Report 12396042 (Version 2)
Quarter: 2016Q3

REPORT INFORMATION
  Report Type: Spontaneous
  Country: GB (occurrence: GB)
  Receive Date: 20160524
  Receipt Date: 20160711
  Transmission Date: 20161109
  Serious: Yes (Other)
  Sender: FDA-Public Use
  Company Number: GB-ALLERGAN-1657156US

PATIENT
  Age: 5 Decade
  Sex: Female

DRUGS (8)
  1. BOTOX [Suspect]
     Active Substance: ONABOTULINUMTOXINA
     Dosage: UNK, SINGLE
     Route: 042
     Dates: start: 201603, end: 201603
  2. LAMICTAL [Suspect]
     Active Substance: LAMOTRIGINE
     Indication: PRODUCT USED FOR UNKNOWN INDICATION
  3. CLOBAZAM [Suspect]
     Active Substance: CLOBAZAM
     Indication: PRODUCT USED FOR UNKNOWN INDICATION
  4. KEPPRA [Suspect]
     Active Substance: LEVETIRACETAM
     Indication: PRODUCT USED FOR UNKNOWN INDICATION
  5. ZONEGRAN [Suspect]
     Active Substance: ZONISAMIDE
     Indication: GENERALISED TONIC-CLONIC SEIZURE
     Dosage: 550 MG, UNK
     Dates: start: 2014
  6. TOPAMAX [Suspect]
     Active Substance: TOPIRAMATE
     Indication: PRODUCT USED FOR UNKNOWN INDICATION
     Dosage: 400 MG, UNK
     Dates: start: 2014
  7. ZONEGRAN [Suspect]
     Active Substance: ZONISAMIDE
     Indication: COMPLEX PARTIAL SEIZURES
     Dosage: UNK
  8. BOTOX [Suspect]
     Active Substance: ONABOTULINUMTOXINA
     Indication: SEIZURE
     Dosage: UNK, SINGLE
     Route: 042
     Dates: start: 201512, end: 201512

REACTIONS (10)
  - Seizure [Unknown]
  - Onychomadesis [Unknown]
  - Off label use [Unknown]
  - Peripheral coldness [Unknown]
  - Drug ineffective for unapproved indication [Unknown]
  - Alopecia [Unknown]
  - Brain injury [Unknown]
  - Weight decreased [Recovering/Resolving]
  - Incorrect route of drug administration [Unknown]
  - Fatigue [Unknown]
